FAERS Safety Report 7560842-0 (Version None)
Quarter: 2011Q2

REPORT INFORMATION
  Report Type: 
  Country: None (occurrence: None)
  Receive Date: 20110621
  Receipt Date: 20100730
  Transmission Date: 20111010
  Serious: No
  Sender: FDA-Public Use
  Company Number: US-ASTRAZENECA-2010SE35740

PATIENT
  Sex: Female
  Weight: 50.3 kg

DRUGS (2)
  1. ATACAND [Suspect]
     Route: 048
  2. LANOXIN [Concomitant]

REACTIONS (6)
  - DECREASED APPETITE [None]
  - BLOOD PRESSURE INCREASED [None]
  - DIZZINESS [None]
  - MUSCULAR WEAKNESS [None]
  - PALPITATIONS [None]
  - HYPERTENSION [None]
